FAERS Safety Report 14340303 (Version 1)
Quarter: 2018Q1

REPORT INFORMATION
  Report Type: Spontaneous
  Country: US (occurrence: US)
  Receive Date: 20180101
  Receipt Date: 20180101
  Transmission Date: 20180509
  Serious: No
  Sender: FDA-Public Use
  Company Number: US-TEVA-2018-US-842627

PATIENT
  Sex: Male

DRUGS (1)
  1. AUSTEDO [Suspect]
     Active Substance: DEUTETRABENAZINE
     Dosage: AUSTEDO 12MG
     Route: 065
     Dates: start: 2017

REACTIONS (4)
  - Asthenia [Unknown]
  - Fall [Unknown]
  - Drug ineffective [Unknown]
  - Condition aggravated [Unknown]

NARRATIVE: CASE EVENT DATE: 2017
